FAERS Safety Report 9351113 (Version 2)
Quarter: 2013Q3

REPORT INFORMATION
  Report Type: Report from Study
  Country: US (occurrence: US)
  Receive Date: 20130617
  Receipt Date: 20130722
  Transmission Date: 20140515
  Serious: Yes (Hospitalization)
  Sender: FDA-Public Use
  Company Number: US-ROCHE-1235247

PATIENT
  Age: 25 Year
  Sex: Female

DRUGS (14)
  1. XOLAIR [Suspect]
     Indication: ASTHMA
     Dosage: 225MG SQ INJECTIONS EVERY 2 WEEKS
     Route: 058
     Dates: start: 20110817, end: 201303
  2. BENADRYL (UNITED STATES) [Concomitant]
     Route: 065
  3. DULERA [Concomitant]
     Dosage: 100MG/5 INHALATION
     Route: 065
  4. CETIRIZINE [Concomitant]
     Route: 065
  5. CYCLOSPORINE [Concomitant]
     Route: 065
  6. ZOFRAN [Concomitant]
     Route: 065
  7. PROZAC [Concomitant]
     Route: 065
  8. VENTOLIN [Concomitant]
  9. KAOPECTATE [Concomitant]
  10. PERIACTIN [Concomitant]
     Route: 065
  11. RANITIDINE [Concomitant]
     Route: 065
  12. HYDROXYZINE [Concomitant]
     Route: 065
  13. ZADITOR [Concomitant]
     Dosage: 0.025%
     Route: 065
  14. EPIPEN [Concomitant]

REACTIONS (17)
  - Mastocytosis [Unknown]
  - Myalgia [Unknown]
  - Anxiety [Unknown]
  - Arthralgia [Unknown]
  - Muscular weakness [Unknown]
  - Chills [Unknown]
  - Flushing [Unknown]
  - Oropharyngeal pain [Unknown]
  - Nausea [Unknown]
  - Joint stiffness [Unknown]
  - Tremor [Unknown]
  - Mood swings [Unknown]
  - Anxiety [Unknown]
  - Feeling abnormal [Unknown]
  - Emotional disorder [Unknown]
  - Weight decreased [Unknown]
  - Dysphagia [Unknown]
